FAERS Safety Report 21650186 (Version 1)
Quarter: 2022Q4

REPORT INFORMATION
  Report Type: Spontaneous
  Country: US (occurrence: US)
  Receive Date: 20221128
  Receipt Date: 20221128
  Transmission Date: 20230112
  Serious: Yes (Other)
  Sender: FDA-Public Use
  Company Number: US-BAYER-2022A161325

PATIENT
  Age: 72 Year
  Sex: Male

DRUGS (7)
  1. MILK OF MAGNESIA ORIGINAL [Suspect]
     Active Substance: MAGNESIUM HYDROXIDE
     Indication: Constipation
     Dosage: 30 MG, ONCE
     Route: 048
     Dates: start: 20221113
  2. DULCOLAX (BISACODYL) [Suspect]
     Active Substance: BISACODYL
     Indication: Constipation
     Dosage: 1 DF, ONCE
     Dates: start: 20221112
  3. CARVEDILOL [Concomitant]
     Active Substance: CARVEDILOL
     Dosage: 6.25 MG, BID
  4. ISOSORBID [ISOSORBIDE MONONITRATE] [Concomitant]
     Dosage: 30 MG, QD
  5. LISINOPRIL [Concomitant]
     Active Substance: LISINOPRIL
     Dosage: 10 MG, QD
  6. ZOVA [SIMVASTATIN] [Concomitant]
     Dosage: 40 MG, QD
  7. SPIRIVA RESPIMAT [Concomitant]
     Active Substance: TIOTROPIUM BROMIDE
     Route: 055

REACTIONS (3)
  - Urinary tract obstruction [None]
  - Blood pressure increased [Recovering/Resolving]
  - Pain [None]

NARRATIVE: CASE EVENT DATE: 20221113
